FAERS Safety Report 8093623-2 (Version None)
Quarter: 2012Q1

REPORT INFORMATION
  Report Type: 
  Country: None (occurrence: None)
  Receive Date: 20120129
  Receipt Date: 20110922
  Transmission Date: 20120608
  Serious: No
  Sender: FDA-Public Use
  Company Number: US-ABBOTT-11P-163-0856949-00

PATIENT
  Age: 20 Year
  Sex: Male

DRUGS (2)
  1. CLARITIN [Concomitant]
     Indication: SEASONAL ALLERGY
  2. HUMIRA [Suspect]
     Indication: CROHN'S DISEASE
     Dates: start: 20110516

REACTIONS (2)
  - INJECTION SITE NODULE [None]
  - INJECTION SITE ERYTHEMA [None]
